FAERS Safety Report 12105849 (Version 1)
Quarter: 2016Q1

REPORT INFORMATION
  Report Type: Spontaneous
  Country: JP (occurrence: JP)
  Receive Date: 20160223
  Receipt Date: 20160223
  Transmission Date: 20160526
  Serious: Yes (Death, Other)
  Sender: FDA-Public Use
  Company Number: JP-BAYER-2015-415776

PATIENT
  Age: 67 Year
  Sex: Male
  Weight: 58 kg

DRUGS (5)
  1. STIVARGA [Suspect]
     Active Substance: REGORAFENIB
     Indication: RECTAL CANCER
     Dosage: 160 MG, QD (3 WEEKS ON AND 1 WEEK OFF)
     Route: 048
     Dates: start: 20150718, end: 20150827
  2. GOSHAJINKIGAN [Concomitant]
     Active Substance: HERBALS
     Dosage: DAILY DOSE 7.5 G
     Route: 048
     Dates: start: 20150701
  3. SUPER CAL600-MG300 [Concomitant]
     Indication: PROPHYLAXIS
     Dosage: DAILY DOSE 2 DF
     Route: 048
     Dates: start: 20150107
  4. METHYCOBAL [Concomitant]
     Active Substance: METHYLCOBALAMIN
     Dosage: DAILY DOSE 750 ?G
     Route: 048
     Dates: start: 20150701
  5. OXALIPLATIN. [Suspect]
     Active Substance: OXALIPLATIN
     Dosage: UNK

REACTIONS (4)
  - Neuropathy peripheral [Recovered/Resolved with Sequelae]
  - Rectal cancer [Fatal]
  - Mucosal erosion [Unknown]
  - Skin disorder [Unknown]

NARRATIVE: CASE EVENT DATE: 20150809
